FAERS Safety Report 11874555 (Version 2)
Quarter: 2016Q2

REPORT INFORMATION
  Report Type: Report from Study
  Country: PT (occurrence: PT)
  Receive Date: 20151229
  Receipt Date: 20160523
  Transmission Date: 20160815
  Serious: Yes (Hospitalization)
  Sender: FDA-Public Use
  Company Number: PHHY2015PT018155

PATIENT
  Age: 36 Year
  Sex: Male

DRUGS (2)
  1. EXTAVIA [Suspect]
     Active Substance: INTERFERON BETA-1B
     Indication: MULTIPLE SCLEROSIS
     Dosage: 250 MCG/ML, QOD
     Route: 058
     Dates: start: 20111123
  2. EXTAVIA [Suspect]
     Active Substance: INTERFERON BETA-1B
     Dosage: UNK
     Route: 058
     Dates: start: 20160514

REACTIONS (6)
  - Chills [Not Recovered/Not Resolved]
  - Infectious mononucleosis [Recovered/Resolved]
  - Asthenia [Not Recovered/Not Resolved]
  - Pyrexia [Unknown]
  - Tremor [Not Recovered/Not Resolved]
  - Rash papular [Not Recovered/Not Resolved]

NARRATIVE: CASE EVENT DATE: 20151207
